FAERS Safety Report 8365881-8 (Version None)
Quarter: 2012Q2

REPORT INFORMATION
  Report Type: 
  Country: None (occurrence: None)
  Receive Date: 20120515
  Receipt Date: 20120515
  Transmission Date: 20120825
  Serious: No
  Sender: FDA-Public Use
  Company Number: None

PATIENT
  Age: 75 Year
  Sex: Female

DRUGS (1)
  1. XELODA [Suspect]
     Dosage: 1500 14 DAYS PO
     Route: 048
     Dates: start: 20120127, end: 20120412

REACTIONS (4)
  - LACERATION [None]
  - SKIN EXFOLIATION [None]
  - VISUAL IMPAIRMENT [None]
  - ORAL PAIN [None]
